FAERS Safety Report 5698222-5 (Version None)
Quarter: 2008Q2

REPORT INFORMATION
  Report Type: 
  Country: None (occurrence: None)
  Receive Date: 20080408
  Receipt Date: 20080327
  Transmission Date: 20081010
  Serious: Yes (Other)
  Sender: FDA-Public Use
  Company Number: CA-PFIZER INC-2008023851

PATIENT
  Sex: Male

DRUGS (7)
  1. LYRICA [Suspect]
     Route: 048
  2. SUCROSE [Suspect]
  3. GLYBURIDE [Concomitant]
  4. AMITRIPTYLINE HCL [Concomitant]
     Dosage: DAILY DOSE:50MG
  5. CESAMET [Concomitant]
     Dosage: DAILY DOSE:.5MG
  6. ASPIRIN [Concomitant]
  7. LIPITOR [Concomitant]

REACTIONS (1)
  - BLOOD GLUCOSE INCREASED [None]
